FAERS Safety Report 7435436-8 (Version None)
Quarter: 2011Q2

REPORT INFORMATION
  Report Type: 
  Country: None (occurrence: None)
  Receive Date: 20110425
  Receipt Date: 20110418
  Transmission Date: 20111010
  Serious: Yes (Other)
  Sender: FDA-Public Use
  Company Number: JP-MERCK-1104USA02706

PATIENT
  Age: 78 Year
  Sex: Male

DRUGS (12)
  1. PLETAL [Concomitant]
     Route: 048
  2. WARFARIN POTASSIUM [Concomitant]
     Route: 048
  3. PARIET [Concomitant]
     Route: 048
  4. ASPIRIN [Concomitant]
     Route: 048
  5. ACTOS [Concomitant]
     Route: 048
  6. URIEF [Concomitant]
     Route: 048
  7. AMARYL [Concomitant]
     Route: 048
     Dates: end: 20110313
  8. JANUVIA [Suspect]
     Route: 048
     Dates: start: 20110212, end: 20110313
  9. NATRIX [Concomitant]
     Route: 048
  10. CONIEL [Concomitant]
     Route: 048
  11. ENALAPRIL MALEATE [Concomitant]
     Route: 048
  12. HALCION [Concomitant]
     Route: 048

REACTIONS (1)
  - PANCYTOPENIA [None]
